FAERS Safety Report 9131761 (Version 1)
Quarter: 2013Q1

REPORT INFORMATION
  Report Type: Spontaneous
  Country: GB (occurrence: GB)
  Receive Date: 20130301
  Receipt Date: 20130301
  Transmission Date: 20140127
  Serious: Yes (Death)
  Sender: FDA-Public Use
  Company Number: GB-BAUSCH-BL-2013-001162

PATIENT
  Age: 72 Year
  Sex: Female

DRUGS (6)
  1. DEXAMETHASONE [Suspect]
     Indication: PLASMA CELL MYELOMA
     Dosage: 1/ 1DAYS
     Route: 041
     Dates: start: 20121016, end: 20130124
  2. DEXAMETHASONE [Suspect]
     Dosage: 1 /1DAYS
     Route: 048
  3. ELOTUZUMAB [Suspect]
     Indication: PLASMA CELL MYELOMA
     Dosage: 1 / 1DAYS
     Route: 041
     Dates: start: 20121016, end: 20130124
  4. LENALIDOMIDE [Suspect]
     Indication: PLASMA CELL MYELOMA
     Dosage: 1/ 1DAYS
     Route: 048
     Dates: start: 20121016, end: 20130130
  5. ACETYLSALICYLIC ACID [Concomitant]
     Indication: PROPHYLAXIS
     Route: 065
  6. DOXYCYCLINE [Concomitant]
     Indication: RESPIRATORY TRACT INFECTION

REACTIONS (2)
  - Pulmonary embolism [Not Recovered/Not Resolved]
  - Death [Fatal]
